FAERS Safety Report 5310744-5 (Version None)
Quarter: 2007Q2

REPORT INFORMATION
  Report Type: 
  Country: None (occurrence: None)
  Receive Date: 20070428
  Receipt Date: 20070416
  Transmission Date: 20071010
  Serious: Yes (Hospitalization)
  Sender: FDA-Public Use
  Company Number: JP-PFIZER INC-2007030142

PATIENT
  Age: 73 Year
  Sex: Male

DRUGS (6)
  1. CABASER [Suspect]
     Indication: PARKINSON'S DISEASE
     Route: 048
     Dates: start: 20060901, end: 20070201
  2. DAIOKANZOTO [Suspect]
     Dates: end: 20070301
  3. MAGNESIUM OXIDE [Suspect]
     Dates: end: 20070301
  4. CLARUTE [Suspect]
     Dates: end: 20070301
  5. ACECOL [Suspect]
     Dates: end: 20070301
  6. BUFFERIN [Suspect]
     Dates: end: 20070301

REACTIONS (1)
  - RASH [None]
